FAERS Safety Report 17423237 (Version 1)
Quarter: 2020Q1

REPORT INFORMATION
  Report Type: Spontaneous
  Country: GB (occurrence: GB)
  Receive Date: 20200216
  Receipt Date: 20200216
  Transmission Date: 20200409
  Serious: Yes (Hospitalization)
  Sender: FDA-Public Use
  Company Number: GB-TEVA-2020-GB-1185739

PATIENT
  Age: 72 Year
  Sex: Female

DRUGS (12)
  1. IBUPROFEN SODIUM. [Suspect]
     Active Substance: IBUPROFEN SODIUM
     Indication: ARTHRALGIA
     Dosage: 1200 MG
     Route: 048
     Dates: start: 20200115, end: 20200127
  2. CALCEOS [Concomitant]
     Active Substance: CALCIUM CARBONATE\CHOLECALCIFEROL
  3. RAMIPRIL. [Concomitant]
     Active Substance: RAMIPRIL
  4. KLIOVANCE [Concomitant]
     Active Substance: ESTRADIOL\NORETHINDRONE ACETATE
  5. DESLORATADINE. [Concomitant]
     Active Substance: DESLORATADINE
  6. CLONAZEPAM. [Concomitant]
     Active Substance: CLONAZEPAM
  7. HYOSCINE BUTYLBROMIDE [Concomitant]
     Active Substance: BUTYLSCOPOLAMINE BROMIDE
  8. PHENOBARBITAL SODIUM. [Concomitant]
     Active Substance: PHENOBARBITAL SODIUM
  9. QUININE [Concomitant]
     Active Substance: QUININE
  10. TRAMADOL. [Concomitant]
     Active Substance: TRAMADOL
  11. ROPINIROLE. [Concomitant]
     Active Substance: ROPINIROLE
  12. MIRTAZAPINE. [Concomitant]
     Active Substance: MIRTAZAPINE

REACTIONS (3)
  - Melaena [Unknown]
  - Duodenal ulcer [Recovered/Resolved with Sequelae]
  - Upper gastrointestinal haemorrhage [Unknown]

NARRATIVE: CASE EVENT DATE: 20200115
